FAERS Safety Report 16992389 (Version 1)
Quarter: 2019Q4

REPORT INFORMATION
  Report Type: Spontaneous
  Country: US (occurrence: US)
  Receive Date: 20191105
  Receipt Date: 20191105
  Transmission Date: 20200122
  Serious: No
  Sender: FDA-Public Use
  Company Number: US-LUPIN PHARMACEUTICALS INC.-2019-01387

PATIENT
  Sex: Male

DRUGS (1)
  1. CEFTRIAXONE INJECTION [Suspect]
     Active Substance: CEFTRIAXONE SODIUM
     Indication: ANIMAL BITE
     Dosage: UNK, SINGLE
     Route: 030
     Dates: start: 201804, end: 2018

REACTIONS (3)
  - Injection site pain [Recovered/Resolved]
  - Recalled product administered [Unknown]
  - Superficial vein prominence [Unknown]

NARRATIVE: CASE EVENT DATE: 2018
